FAERS Safety Report 14188528 (Version 1)
Quarter: 2017Q4

REPORT INFORMATION
  Report Type: Spontaneous
  Country: US (occurrence: US)
  Receive Date: 20171114
  Receipt Date: 20171114
  Transmission Date: 20180321
  Serious: No
  Sender: FDA-Public Use
  Company Number: US-BAUSCH-BL-2017-023522

PATIENT
  Age: 71 Year
  Sex: Female
  Weight: 77.18 kg

DRUGS (2)
  1. IBUPROFEN. [Concomitant]
     Active Substance: IBUPROFEN
     Indication: PRODUCT USED FOR UNKNOWN INDICATION
  2. APRISO [Suspect]
     Active Substance: MESALAMINE
     Indication: IRRITABLE BOWEL SYNDROME
     Route: 065
     Dates: start: 201705, end: 201708

REACTIONS (4)
  - Off label use [Recovered/Resolved]
  - Abdominal pain upper [Not Recovered/Not Resolved]
  - Diarrhoea [Not Recovered/Not Resolved]
  - Treatment noncompliance [Unknown]

NARRATIVE: CASE EVENT DATE: 201705
